FAERS Safety Report 17703410 (Version 3)
Quarter: 2020Q4

REPORT INFORMATION
  Report Type: Spontaneous
  Country: JP (occurrence: JP)
  Receive Date: 20200423
  Receipt Date: 20201230
  Transmission Date: 20210113
  Serious: Yes (Other)
  Sender: FDA-Public Use
  Company Number: JP-TAKEDA-2020TJP006781

PATIENT
  Age: 83 Year
  Sex: Female
  Weight: 44.1 kg

DRUGS (12)
  1. ROZEREM [Suspect]
     Active Substance: RAMELTEON
     Indication: DELIRIUM
  2. AMANTADINE HYDROCHLORIDE. [Concomitant]
     Active Substance: AMANTADINE HYDROCHLORIDE
     Indication: DEMENTIA
     Dosage: 50 MILLIGRAM, TID
     Route: 048
     Dates: start: 20190107
  3. AMLODIPINE BESILATE [Concomitant]
     Active Substance: AMLODIPINE BESYLATE
     Dosage: UNK
     Route: 065
  4. BETANIS [Concomitant]
     Active Substance: MIRABEGRON
     Indication: HYPERTONIC BLADDER
     Dosage: 50 MILLIGRAM, QD
     Route: 048
     Dates: start: 20150522
  5. BELSOMRA [Suspect]
     Active Substance: SUVOREXANT
     Indication: INSOMNIA
     Dosage: 15 MILLIGRAM, QD
     Route: 048
     Dates: start: 20181022, end: 20190306
  6. GASMOTIN [Concomitant]
     Active Substance: MOSAPRIDE CITRATE
     Dosage: 15 MILLIGRAM
     Route: 065
  7. E KEPPRA [Concomitant]
     Active Substance: LEVETIRACETAM
     Indication: SEIZURE
     Dosage: 500 MILLIGRAM, BID
     Route: 048
     Dates: start: 20190213, end: 20190222
  8. ROZEREM [Suspect]
     Active Substance: RAMELTEON
     Indication: INSOMNIA
     Dosage: 8 MILLIGRAM, QD
     Route: 048
     Dates: start: 20190220, end: 20190306
  9. RIVASTACH [Concomitant]
     Active Substance: RIVASTIGMINE
     Dosage: 5 MILLIGRAM
     Route: 065
  10. QUETIAPINE                         /01270902/ [Concomitant]
     Active Substance: QUETIAPINE FUMARATE
     Dosage: 25 MILLIGRAM
     Route: 065
  11. YOKUKANSAN [Concomitant]
     Active Substance: HERBALS
     Indication: DEMENTIA
     Dosage: 1 DOSAGE FORM, TID
     Route: 048
     Dates: start: 20190107
  12. RIVASTACH [Concomitant]
     Active Substance: RIVASTIGMINE
     Dosage: 4.5 MILLIGRAM
     Route: 065

REACTIONS (2)
  - Decreased appetite [Recovered/Resolved]
  - Depressed level of consciousness [Recovering/Resolving]

NARRATIVE: CASE EVENT DATE: 20190223
